FAERS Safety Report 10414121 (Version 2)
Quarter: 2014Q3

REPORT INFORMATION
  Report Type: Spontaneous
  Country: US (occurrence: US)
  Receive Date: 20140827
  Receipt Date: 20140827
  Transmission Date: 20150326
  Serious: No
  Sender: FDA-Public Use
  Company Number: US-ASTRAZENECA-2013SE76602

PATIENT
  Sex: Female

DRUGS (1)
  1. SYMBICORT [Suspect]
     Active Substance: BUDESONIDE\FORMOTEROL FUMARATE DIHYDRATE
     Dosage: 160 MCG/4.5 MCG, 4 PUFFS, DAILY, IN THE MORNING AND AT NIGHT
     Route: 055
     Dates: start: 20130929

REACTIONS (4)
  - Visual impairment [Unknown]
  - Anxiety [Unknown]
  - Drug dose omission [Unknown]
  - Incorrect product storage [Unknown]
